FAERS Safety Report 8544185 (Version 2)
Quarter: 2012Q4

REPORT INFORMATION
  Report Type: 
  Country: US (occurrence: US)
  Receive Date: 20120503
  Receipt Date: 20120907
  Transmission Date: 20130627
  Serious: Yes (Hospitalization)
  Sender: FDA-Public Use
  Company Number: US-BAYER-2012-042623

PATIENT
  Age: 30 Year
  Sex: Female
  Weight: 73.92 kg

DRUGS (17)
  1. YAZ [Suspect]
     Indication: CONTRACEPTION
     Dosage: UNK
     Dates: start: 20070529, end: 20090626
  2. CHOLESTYRAMINE [Concomitant]
     Indication: CROHN^S DISEASE
     Dosage: 4 grams in liquid
     Dates: start: 2007, end: 2009
  3. BELLADONNA ALKALOIDS [Concomitant]
     Indication: CROHN^S DISEASE
     Dosage: 2 tablets 3 times daily
     Dates: start: 200708, end: 200909
  4. PROMETHAZINE [Concomitant]
     Indication: CROHN^S DISEASE
     Dosage: 1 pill 4 [times] daily
     Dates: start: 200903, end: 201008
  5. PROMETHAZINE [Concomitant]
     Indication: NAUSEA
  6. CIPROFLOXACIN [Concomitant]
     Indication: CROHN^S DISEASE
     Dosage: 1 pill 1 [times] daily
     Dates: start: 2007, end: 2009
  7. PREDNISONE [Concomitant]
     Indication: CROHN^S DISEASE
     Dosage: 1 pill 5 [times] daily
     Dates: start: 200906
  8. METRONIDAZOLE [Concomitant]
     Indication: CROHN^S DISEASE
     Dosage: 1 pill 1 [times] daily
     Dates: start: 200906
  9. OXYCODONE/APAP [Concomitant]
     Indication: PAIN
     Dosage: 5-325 mg q (interpreted as every) 4 to 6 hours as needed
  10. MESALAMINE [Concomitant]
  11. FLAGYL [Concomitant]
     Dosage: 500 mg, BID
     Dates: start: 20090616, end: 20090621
  12. DEMEROL [Concomitant]
     Dosage: UNK
     Dates: start: 20090617
  13. ZOFRAN [Concomitant]
     Dosage: UNK
     Dates: start: 20090617
  14. DIPENTUM [Concomitant]
     Dosage: 1000 mg, QID
  15. OXYCODONE [Concomitant]
     Indication: PAIN
     Dosage: 5 mg q 6 hours prn
  16. QUESTRAN [Concomitant]
     Dosage: 4 g, BID
     Route: 048
  17. DONNATAL [Concomitant]

REACTIONS (4)
  - Deep vein thrombosis [Recovered/Resolved]
  - Pain in extremity [Recovered/Resolved]
  - Injury [None]
  - Pain [None]
